FAERS Safety Report 21554192 (Version 1)
Quarter: 2022Q4

REPORT INFORMATION
  Report Type: Other
  Country: IN (occurrence: None)
  Receive Date: 20221104
  Receipt Date: 20221104
  Transmission Date: 20230112
  Serious: Yes (Death)
  Sender: FDA-Public Use
  Company Number: IN-ROCHE-3211774

PATIENT
  Age: 44 Year
  Sex: Female

DRUGS (1)
  1. PHESGO [Suspect]
     Active Substance: HYALURONIDASE-ZZXF\PERTUZUMAB\TRASTUZUMAB
     Indication: Breast cancer metastatic
     Route: 058
     Dates: start: 20220314

REACTIONS (2)
  - Metastases to central nervous system [Fatal]
  - Death [Fatal]

NARRATIVE: CASE EVENT DATE: 20221015
